FAERS Safety Report 22349873 (Version 1)
Quarter: 2023Q2

REPORT INFORMATION
  Report Type: Spontaneous
  Country: GB (occurrence: None)
  Receive Date: 20230519
  Receipt Date: 20230519
  Transmission Date: 20230721
  Serious: No
  Sender: FDA-Public Use
  Company Number: None

PATIENT
  Age: 72 Year
  Sex: Male

DRUGS (1)
  1. OXYCODONE [Suspect]
     Active Substance: OXYCODONE
     Indication: Spinal pain

REACTIONS (3)
  - Product taste abnormal [None]
  - Adverse reaction [None]
  - Product substitution issue [None]

NARRATIVE: CASE EVENT DATE: 20230424
